FAERS Safety Report 10349954 (Version 1)
Quarter: 2014Q3

REPORT INFORMATION
  Report Type: Spontaneous
  Country: US (occurrence: None)
  Receive Date: 20140728
  Receipt Date: 20140728
  Transmission Date: 20150326
  Serious: Yes (Hospitalization)
  Sender: FDA-Public Use
  Company Number: None

PATIENT
  Age: 29 Year
  Sex: Female
  Weight: 81.65 kg

DRUGS (1)
  1. BELVIQ [Suspect]
     Active Substance: LORCASERIN HYDROCHLORIDE
     Indication: WEIGHT DECREASED
     Dosage: 2 PILLS
     Route: 048
     Dates: start: 20140702, end: 20140702

REACTIONS (6)
  - Vomiting [None]
  - Emotional disorder [None]
  - Tachycardia [None]
  - Fatigue [None]
  - Feeling jittery [None]
  - Feeling abnormal [None]

NARRATIVE: CASE EVENT DATE: 20140702
